FAERS Safety Report 11347033 (Version 1)
Quarter: 2015Q3

REPORT INFORMATION
  Report Type: Spontaneous
  Country: US (occurrence: US)
  Receive Date: 20150803
  Receipt Date: 20150803
  Transmission Date: 20151125
  Serious: No
  Sender: FDA-Public Use
  Company Number: US-ELI_LILLY_AND_COMPANY-US201101001577

PATIENT
  Sex: Female

DRUGS (4)
  1. NEURONTIN [Concomitant]
     Active Substance: GABAPENTIN
     Dosage: 300 MG, 4/D
  2. COLACE [Concomitant]
     Active Substance: DOCUSATE SODIUM
  3. ZYPREXA [Suspect]
     Active Substance: OLANZAPINE
     Indication: MOOD SWINGS
     Dosage: 30 MG, DAILY (1/D)
     Route: 065
     Dates: start: 201010
  4. VITAMIN D [Concomitant]
     Active Substance: CHOLECALCIFEROL

REACTIONS (6)
  - Pain in extremity [Unknown]
  - Oedema peripheral [Unknown]
  - Weight increased [Unknown]
  - Prescribed overdose [Recovered/Resolved]
  - Off label use [Recovered/Resolved]
  - Crying [Not Recovered/Not Resolved]
